FAERS Safety Report 16110089 (Version 1)
Quarter: 2019Q1

REPORT INFORMATION
  Report Type: Spontaneous
  Country: FR (occurrence: FR)
  Receive Date: 20190325
  Receipt Date: 20190325
  Transmission Date: 20190418
  Serious: Yes (Hospitalization)
  Sender: FDA-Public Use
  Company Number: FR-ACCORD-115086

PATIENT
  Age: 45 Year
  Sex: Male
  Weight: 135 kg

DRUGS (15)
  1. HYDROCHLOROTHIAZIDE. [Suspect]
     Active Substance: HYDROCHLOROTHIAZIDE
     Indication: HYPERTENSION
     Route: 048
     Dates: end: 20181111
  2. DIFFU K [Concomitant]
     Active Substance: POTASSIUM CHLORIDE
  3. SALBUTAMOL [Concomitant]
     Active Substance: ALBUTEROL
  4. ESOMEPRAZOLE. [Concomitant]
     Active Substance: ESOMEPRAZOLE MAGNESIUM
  5. FUROSEMIDE. [Suspect]
     Active Substance: FUROSEMIDE
     Indication: HYPERTENSION
     Route: 048
     Dates: end: 20181111
  6. FINASTERIDE. [Concomitant]
     Active Substance: FINASTERIDE
  7. ALLOPURINOL. [Concomitant]
     Active Substance: ALLOPURINOL
  8. SPIRONOLACTONE. [Suspect]
     Active Substance: SPIRONOLACTONE
     Indication: HYPERTENSION
     Route: 048
     Dates: end: 20181111
  9. ROSUVASTATIN. [Concomitant]
     Active Substance: ROSUVASTATIN
  10. ALFUZOSIN [Concomitant]
     Active Substance: ALFUZOSIN
  11. PARACETAMOL [Concomitant]
     Active Substance: ACETAMINOPHEN
  12. IVABRADINE/IVABRADINE HYDROCHLORIDE [Concomitant]
  13. ENTRESTO [Suspect]
     Active Substance: SACUBITRIL\VALSARTAN
     Indication: CARDIAC FAILURE CHRONIC
     Dosage: STRENGTH:49 MG/51 MG
     Route: 048
     Dates: start: 20181020, end: 20181111
  14. KARDEGIC [Concomitant]
     Active Substance: ASPIRIN DL-LYSINE
  15. BISOPROLOL [Concomitant]
     Active Substance: BISOPROLOL

REACTIONS (2)
  - Acute kidney injury [Recovered/Resolved]
  - Hypotension [Recovered/Resolved]

NARRATIVE: CASE EVENT DATE: 20181111
